FAERS Safety Report 4898648-3 (Version None)
Quarter: 2006Q1

REPORT INFORMATION
  Report Type: 
  Country: None (occurrence: None)
  Receive Date: 20060202
  Receipt Date: 20060123
  Transmission Date: 20060701
  Serious: No
  Sender: FDA-Public Use
  Company Number: 2006GB00113

PATIENT

DRUGS (2)
  1. SEROQUEL [Suspect]
     Route: 048
  2. VALPROATE SODIUM [Concomitant]

REACTIONS (1)
  - LEUKOPENIA [None]
